FAERS Safety Report 26108256 (Version 1)
Quarter: 2025Q4

REPORT INFORMATION
  Report Type: Spontaneous
  Country: US (occurrence: US)
  Receive Date: 20251201
  Receipt Date: 20251201
  Transmission Date: 20260118
  Serious: Yes (Death, Hospitalization, Other)
  Sender: ROCHE
  Company Number: US-ROCHE-10000445226

PATIENT
  Age: 83 Year
  Sex: Female

DRUGS (2)
  1. RITUXIMAB [Suspect]
     Active Substance: RITUXIMAB
     Indication: Multiple sclerosis
     Route: 065
  2. OZEMPIC [Concomitant]
     Active Substance: SEMAGLUTIDE

REACTIONS (18)
  - Colitis [Unknown]
  - Electrolyte imbalance [Unknown]
  - Melaena [Unknown]
  - Gastric ulcer [Unknown]
  - Haemoglobin decreased [Unknown]
  - Anal incontinence [Unknown]
  - Steatorrhoea [Unknown]
  - Congenital cystic kidney disease [Unknown]
  - Adrenal adenoma [Unknown]
  - Diverticulum intestinal [Unknown]
  - Haemorrhoids [Unknown]
  - Early satiety [Unknown]
  - Taste disorder [Unknown]
  - Acute kidney injury [Unknown]
  - Dehydration [Unknown]
  - Urosepsis [Fatal]
  - Escherichia infection [Unknown]
  - Off label use [Unknown]

NARRATIVE: CASE EVENT DATE: 20250101
